FAERS Safety Report 23139064 (Version 6)
Quarter: 2024Q1

REPORT INFORMATION
  Report Type: Spontaneous
  Country: US (occurrence: US)
  Receive Date: 20231102
  Receipt Date: 20240228
  Transmission Date: 20240409
  Serious: Yes (Hospitalization, Other)
  Sender: FDA-Public Use
  Company Number: US-BEH-2023164942

PATIENT
  Sex: Male

DRUGS (10)
  1. IDELVION [Suspect]
     Active Substance: COAGULATION FACTOR IX RECOMBINANT HUMAN
     Indication: Factor IX deficiency
     Dosage: 4000 INTERNATIONAL UNIT, (3600-4400) QW
     Route: 042
     Dates: start: 201912
  2. IDELVION [Suspect]
     Active Substance: COAGULATION FACTOR IX RECOMBINANT HUMAN
     Indication: Factor IX deficiency
     Dosage: 4000 INTERNATIONAL UNIT, (3600-4400) QW
     Route: 042
     Dates: start: 201912
  3. IDELVION [Suspect]
     Active Substance: COAGULATION FACTOR IX RECOMBINANT HUMAN
     Indication: Prophylaxis
  4. IDELVION [Suspect]
     Active Substance: COAGULATION FACTOR IX RECOMBINANT HUMAN
     Indication: Prophylaxis
  5. IDELVION [Suspect]
     Active Substance: COAGULATION FACTOR IX RECOMBINANT HUMAN
     Indication: Factor IX deficiency
     Dosage: 3500 INTERNATIONAL UNIT (3150-3850), EVERY DAY AS NEEDED
     Route: 042
     Dates: start: 201912
  6. IDELVION [Suspect]
     Active Substance: COAGULATION FACTOR IX RECOMBINANT HUMAN
     Indication: Factor IX deficiency
     Dosage: 3500 INTERNATIONAL UNIT (3150-3850), EVERY DAY AS NEEDED
     Route: 042
     Dates: start: 201912
  7. IDELVION [Suspect]
     Active Substance: COAGULATION FACTOR IX RECOMBINANT HUMAN
     Indication: Haemorrhage
     Dosage: 8000 INTERNATIONAL UNIT (7200-8800) PRIOR TO PROCEDURE
     Route: 042
     Dates: start: 201912
  8. IDELVION [Suspect]
     Active Substance: COAGULATION FACTOR IX RECOMBINANT HUMAN
     Indication: Haemorrhage
     Dosage: 8000 INTERNATIONAL UNIT (7200-8800) PRIOR TO PROCEDURE
     Route: 042
     Dates: start: 201912
  9. IDELVION [Suspect]
     Active Substance: COAGULATION FACTOR IX RECOMBINANT HUMAN
     Dosage: 4000 INTERNATIONAL UNIT (3600-4400) EVERY 48 HOURS FOR 3 DOSES AFTER PROCEDURE
     Route: 042
     Dates: start: 201912
  10. IDELVION [Suspect]
     Active Substance: COAGULATION FACTOR IX RECOMBINANT HUMAN
     Dosage: 4000 INTERNATIONAL UNIT (3600-4400) EVERY 48 HOURS FOR 3 DOSES AFTER PROCEDURE
     Route: 042
     Dates: start: 201912

REACTIONS (4)
  - Haemorrhage [Recovered/Resolved]
  - Haemarthrosis [Unknown]
  - Muscle haemorrhage [Recovered/Resolved]
  - Procedural haemorrhage [Unknown]
